FAERS Safety Report 8764011 (Version 1)
Quarter: 2012Q4

REPORT INFORMATION
  Report Type: 
  Country: US (occurrence: US)
  Receive Date: 20120831
  Receipt Date: 20120831
  Transmission Date: 20130627
  Serious: Yes (Other)
  Sender: FDA-Public Use
  Company Number: US-RANBAXY-2012US-59444

PATIENT
  Sex: Female

DRUGS (2)
  1. LORATADINE AND PSEUDOEPHEDRINE [Suspect]
     Indication: HYPERSENSITIVITY
     Dosage: 1 DF, qd
     Route: 065
  2. LORATADINE AND PSEUDOEPHEDRINE [Suspect]
     Indication: NASAL CONGESTION

REACTIONS (5)
  - Oedema peripheral [Recovering/Resolving]
  - Arthralgia [Recovering/Resolving]
  - Hypoaesthesia [Unknown]
  - Eye haemorrhage [Unknown]
  - Visual impairment [Unknown]
